FAERS Safety Report 5752732-0 (Version None)
Quarter: 2008Q2

REPORT INFORMATION
  Report Type: 
  Country: None (occurrence: None)
  Receive Date: 20080529
  Receipt Date: 20080519
  Transmission Date: 20081010
  Serious: Yes (Hospitalization, Other)
  Sender: FDA-Public Use
  Company Number: HR-ELI_LILLY_AND_COMPANY-HR200805003787

PATIENT
  Age: 55 Year
  Sex: Female

DRUGS (1)
  1. ZYPREXA [Suspect]
     Indication: DELUSIONAL DISORDER, PERSECUTORY TYPE
     Dosage: 10 MG, DAILY (1/D)
     Route: 065

REACTIONS (8)
  - DEPRESSION [None]
  - EYELID PTOSIS [None]
  - HEMIPARESIS [None]
  - INTRACRANIAL ANEURYSM [None]
  - MENINGITIS [None]
  - NERVOUS SYSTEM DISORDER [None]
  - SKIN OEDEMA [None]
  - TREMOR [None]
